FAERS Safety Report 6708609-7 (Version None)
Quarter: 2010Q2

REPORT INFORMATION
  Report Type: 
  Country: None (occurrence: None)
  Receive Date: 20100428
  Receipt Date: 20100409
  Transmission Date: 20101027
  Serious: Yes (Hospitalization, Other)
  Sender: FDA-Public Use
  Company Number: GandW FILE C-10-029

PATIENT
  Age: 5 Year
  Sex: Female

DRUGS (1)
  1. ACEPHEN [Suspect]
     Indication: PYREXIA
     Dosage: 650 MG, ONCE, RECTALLY
     Route: 054
     Dates: start: 20020201, end: 20100203

REACTIONS (4)
  - APPLICATION SITE REACTION [None]
  - HAEMATOMA [None]
  - LACERATION [None]
  - RECTAL HAEMORRHAGE [None]
